FAERS Safety Report 5917149-4 (Version None)
Quarter: 2008Q4

REPORT INFORMATION
  Report Type: 
  Country: None (occurrence: None)
  Receive Date: 20081014
  Receipt Date: 20081007
  Transmission Date: 20090506
  Serious: Yes (Hospitalization, Disabling, Other)
  Sender: FDA-Public Use
  Company Number: BR-BAYER-BR-2005-015402

PATIENT
  Age: 37 Year
  Sex: Female

DRUGS (2)
  1. BETAFERON [Suspect]
     Indication: MULTIPLE SCLEROSIS
     Route: 058
     Dates: start: 20041101, end: 20050101
  2. BETAFERON [Suspect]
     Route: 058
     Dates: start: 20050101, end: 20070101

REACTIONS (9)
  - GAIT DISTURBANCE [None]
  - HEMIPLEGIA [None]
  - INJECTION SITE ERYTHEMA [None]
  - INJECTION SITE IRRITATION [None]
  - INJECTION SITE MASS [None]
  - INJECTION SITE PAIN [None]
  - MUSCULAR WEAKNESS [None]
  - NEURITIS [None]
  - UNEVALUABLE EVENT [None]
